FAERS Safety Report 8608250-5 (Version None)
Quarter: 2012Q3

REPORT INFORMATION
  Report Type: 
  Country: None (occurrence: None)
  Receive Date: 20120821
  Receipt Date: 20120806
  Transmission Date: 20120928
  Serious: No
  Sender: FDA-Public Use
  Company Number: US-ASTRAZENECA-2012SE55263

PATIENT
  Age: 53 Year
  Sex: Female

DRUGS (3)
  1. ALBUTEROL [Concomitant]
  2. PREDNISONE [Concomitant]
  3. SYMBICORT [Suspect]
     Dosage: UNKNOWN
     Route: 055

REACTIONS (6)
  - INSOMNIA [None]
  - DYSPNOEA [None]
  - EXPOSURE TO TOXIC AGENT [None]
  - ASTHMA [None]
  - DRUG EFFECT DECREASED [None]
  - DRUG DOSE OMISSION [None]
